FAERS Safety Report 11775875 (Version 1)
Quarter: 2015Q4

REPORT INFORMATION
  Report Type: Spontaneous
  Country: US (occurrence: US)
  Receive Date: 20151125
  Receipt Date: 20151125
  Transmission Date: 20160304
  Serious: No
  Sender: FDA-Public Use
  Company Number: US-JNJFOC-20151023512

PATIENT
  Sex: Male
  Weight: 95.26 kg

DRUGS (2)
  1. INVEGA [Suspect]
     Active Substance: PALIPERIDONE
     Indication: ANXIETY
     Route: 048
     Dates: start: 201509
  2. INVEGA [Suspect]
     Active Substance: PALIPERIDONE
     Indication: PSYCHOTIC DISORDER
     Route: 048
     Dates: start: 201509

REACTIONS (6)
  - Weight fluctuation [Not Recovered/Not Resolved]
  - Communication disorder [Not Recovered/Not Resolved]
  - Impaired work ability [Not Recovered/Not Resolved]
  - Drug dose omission [Unknown]
  - Therapeutic response decreased [Unknown]
  - Thought blocking [Not Recovered/Not Resolved]

NARRATIVE: CASE EVENT DATE: 2015
